FAERS Safety Report 5804504-6 (Version None)
Quarter: 2008Q3

REPORT INFORMATION
  Report Type: 
  Country: None (occurrence: None)
  Receive Date: 20080709
  Receipt Date: 20080709
  Transmission Date: 20090109
  Serious: Yes (Hospitalization)
  Sender: FDA-Public Use
  Company Number: Z0000442B

PATIENT
  Age: 67 Year
  Sex: Female
  Weight: 56 kg

DRUGS (6)
  1. GW679769 [Suspect]
     Dosage: 90MG PER DAY
     Route: 042
     Dates: start: 20080312
  2. DEXAMETHASONE [Suspect]
     Dosage: 8MG PER DAY
     Route: 042
     Dates: start: 20080312
  3. ONDANSETRON [Suspect]
     Dosage: 8MG TWICE PER DAY
     Route: 048
     Dates: start: 20080312
  4. OXALIPLATINE [Concomitant]
     Indication: COLORECTAL CANCER
     Dosage: 130MG PER DAY
     Route: 042
     Dates: start: 20080312
  5. FLUROBLASTINE [Concomitant]
     Indication: COLORECTAL CANCER
     Dosage: 2480MG PER DAY
     Route: 042
     Dates: start: 20080312
  6. LEUCOVORIN CALCIUM [Concomitant]
     Indication: COLORECTAL CANCER
     Dosage: 155MG PER DAY
     Route: 042
     Dates: start: 20080312

REACTIONS (1)
  - INTESTINAL OBSTRUCTION [None]
